FAERS Safety Report 12596084 (Version 2)
Quarter: 2017Q1

REPORT INFORMATION
  Report Type: Report from Study
  Country: US (occurrence: US)
  Receive Date: 20160726
  Receipt Date: 20170126
  Transmission Date: 20170428
  Serious: No
  Sender: FDA-Public Use
  Company Number: US-AMGEN-USASL2016071725

PATIENT
  Age: 67 Year
  Sex: Male

DRUGS (2)
  1. CYTOXAN [Concomitant]
     Active Substance: CYCLOPHOSPHAMIDE
     Indication: PLASMA CELL MYELOMA
     Dosage: UNK
     Dates: start: 20160511
  2. KYPROLIS [Suspect]
     Active Substance: CARFILZOMIB
     Indication: PLASMA CELL MYELOMA
     Dosage: 50 MG, PER 28 DAYS
     Route: 065
     Dates: start: 20160511

REACTIONS (2)
  - Platelet count abnormal [Unknown]
  - Anaemia [Unknown]

NARRATIVE: CASE EVENT DATE: 2016
